FAERS Safety Report 9139263 (Version 2)
Quarter: 2013Q2

REPORT INFORMATION
  Report Type: Spontaneous
  Country: US (occurrence: US)
  Receive Date: 20130305
  Receipt Date: 20130404
  Transmission Date: 20140414
  Serious: Yes (Other)
  Sender: FDA-Public Use
  Company Number: PHEH2013US004921

PATIENT
  Sex: Female

DRUGS (4)
  1. DIOVAN HCT [Suspect]
     Dosage: UNK UKN, UNK
     Dates: end: 201212
  2. DIOVAN HCT [Suspect]
     Dosage: UNK UKN, UNK
  3. HYDROCHLOROTHIAZIDE,VALSARTAN [Suspect]
     Dosage: 1 DF (160 MG VALS/ 12.5 MG HCTZ ), QD
     Route: 048
     Dates: start: 201212
  4. ADVAIR [Concomitant]
     Dosage: UNK UKN, UNK

REACTIONS (3)
  - Diabetes mellitus [Unknown]
  - Migraine [Unknown]
  - Blood pressure increased [Unknown]
